FAERS Safety Report 19929051 (Version 3)
Quarter: 2021Q4

REPORT INFORMATION
  Report Type: Spontaneous
  Country: JP (occurrence: JP)
  Receive Date: 20211007
  Receipt Date: 20211103
  Transmission Date: 20220303
  Serious: Yes (Hospitalization, Other)
  Sender: FDA-Public Use
  Company Number: JP-FERRING-EVA202101329FERRINGPH

PATIENT
  Age: 77 Year
  Sex: Female

DRUGS (3)
  1. DESMOPRESSIN ACETATE [Suspect]
     Active Substance: DESMOPRESSIN ACETATE
     Indication: Diabetes insipidus
     Dosage: 30 UG IN THE MORNING AND 60 UG BEFORE BEDTIME
     Route: 065
     Dates: start: 20210901, end: 20210909
  2. CORTRIL [Concomitant]
     Active Substance: HYDROCORTISONE
     Indication: Product used for unknown indication
     Dosage: UNK
     Route: 065
  3. OXYTOCIN [Concomitant]
     Active Substance: OXYTOCIN
     Route: 065

REACTIONS (4)
  - Loss of consciousness [Recovering/Resolving]
  - Hypernatraemia [Recovered/Resolved]
  - Hypokalaemia [Unknown]
  - Wrong technique in product usage process [Unknown]

NARRATIVE: CASE EVENT DATE: 20210901
